FAERS Safety Report 7008385-7 (Version None)
Quarter: 2010Q3

REPORT INFORMATION
  Report Type: 
  Country: None (occurrence: None)
  Receive Date: 20100922
  Receipt Date: 20100914
  Transmission Date: 20110219
  Serious: Yes (Other)
  Sender: FDA-Public Use
  Company Number: B0582058A

PATIENT
  Sex: Male

DRUGS (3)
  1. AVODART [Suspect]
     Dosage: 1TAB PER DAY
     Route: 065
  2. OLAMINE [Concomitant]
     Indication: PRODUCT USED FOR UNKNOWN INDICATION
     Route: 065
  3. GLUCOSAMINE SULPHATE [Concomitant]
     Indication: PRODUCT USED FOR UNKNOWN INDICATION
     Route: 065

REACTIONS (7)
  - ABNORMAL SENSATION IN EYE [None]
  - ANAL SPHINCTER ATONY [None]
  - BREAST INDURATION [None]
  - DEFAECATION URGENCY [None]
  - INCONTINENCE [None]
  - PRURITUS [None]
  - SKIN LESION [None]
